FAERS Safety Report 6766097-9 (Version None)
Quarter: 2010Q2

REPORT INFORMATION
  Report Type: 
  Country: None (occurrence: None)
  Receive Date: 20100611
  Receipt Date: 20100531
  Transmission Date: 20101027
  Serious: Yes (Other)
  Sender: FDA-Public Use
  Company Number: PHHY2010FR36209

PATIENT
  Age: 67 Year
  Sex: Male

DRUGS (10)
  1. NEORAL [Suspect]
     Indication: HEART TRANSPLANT
     Dosage: 0.75 MG
     Dates: start: 20050101
  2. CORTANCYL [Suspect]
     Indication: HEART TRANSPLANT
     Dosage: UNK
     Dates: start: 20050101
  3. ALLOPURINOL [Suspect]
     Indication: HEART TRANSPLANT
     Dosage: 100 MG, QD
     Dates: start: 20050101
  4. SECTRAL [Suspect]
     Indication: HEART TRANSPLANT
     Dosage: 300 MG WEEKLY
     Dates: start: 20050101
  5. ESIDRIX [Suspect]
     Indication: HEART TRANSPLANT
     Dosage: 37.5 MG WEEKLY
     Dates: start: 20050101
  6. NEXIUM [Suspect]
     Indication: HEART TRANSPLANT
     Dosage: 40 MG, QD
  7. KARDEGIC [Suspect]
     Indication: HEART TRANSPLANT
     Dosage: UNK
     Dates: start: 20050101
  8. OROCAL D3 [Suspect]
     Indication: HEART TRANSPLANT
     Dosage: 2 DF DAILY
     Dates: start: 20050101
  9. KALEORID [Suspect]
     Indication: HEART TRANSPLANT
     Dosage: 3000 MG DAILY
     Dates: start: 20050101
  10. LASIX [Concomitant]

REACTIONS (9)
  - ACCIDENT [None]
  - ARTHRALGIA [None]
  - AXONAL NEUROPATHY [None]
  - DEMYELINATING POLYNEUROPATHY [None]
  - GAIT DISTURBANCE [None]
  - NEUROPATHY PERIPHERAL [None]
  - PAIN IN EXTREMITY [None]
  - PERIPHERAL MOTOR NEUROPATHY [None]
  - SKIN LESION [None]
